FAERS Safety Report 6106778-3 (Version None)
Quarter: 2009Q1

REPORT INFORMATION
  Report Type: 
  Country: None (occurrence: None)
  Receive Date: 20090304
  Receipt Date: 20090217
  Transmission Date: 20090719
  Serious: Yes (Life-Threatening, Other)
  Sender: FDA-Public Use
  Company Number: 2008BM000241

PATIENT
  Age: 3 Year
  Sex: Male
  Weight: 16 kg

DRUGS (3)
  1. NAGLAZYME [Suspect]
     Indication: MUCOPOLYSACCHARIDOSIS VI
     Dosage: 15 MG QW IV DRP
     Route: 041
     Dates: start: 20080516
  2. FLEBOCORTID [Concomitant]
  3. ACETAMINOPHEN [Concomitant]

REACTIONS (4)
  - CHEST PAIN [None]
  - HYPERTENSION [None]
  - INFUSION RELATED REACTION [None]
  - LETHARGY [None]
